FAERS Safety Report 5538344-2 (Version None)
Quarter: 2007Q4

REPORT INFORMATION
  Report Type: 
  Country: None (occurrence: None)
  Receive Date: 20071205
  Receipt Date: 20071121
  Transmission Date: 20080405
  Serious: Yes (Life-Threatening)
  Sender: FDA-Public Use
  Company Number: 2007002293

PATIENT
  Age: 40 Year
  Sex: Male
  Weight: 120 kg

DRUGS (5)
  1. ERLOTINIB (ERLOTINIB HC1) (TABLET) (ERLOTINIB HC1) [Suspect]
     Indication: GLIOBLASTOMA
     Dosage: 150 MG, QD, ORAL
     Route: 048
  2. RAPAMUNE [Suspect]
     Dosage: 5 MG, QD, ORAL
     Route: 048
     Dates: start: 20071101
  3. DEXAMETHASONE TAB [Concomitant]
  4. LEVETIRACETAM [Concomitant]
  5. RANITIDINE [Concomitant]

REACTIONS (1)
  - THROMBOCYTOPENIA [None]
